FAERS Safety Report 9167807 (Version 1)
Quarter: 2013Q1

REPORT INFORMATION
  Report Type: Spontaneous
  Country: GB (occurrence: None)
  Receive Date: 20130307
  Receipt Date: 20130307
  Transmission Date: 20140127
  Serious: Yes (Other)
  Sender: FDA-Public Use
  Company Number: AUR-APL-2013-01759

PATIENT
  Sex: Female

DRUGS (11)
  1. GABAPENTIN (GABAPENTIN) [Suspect]
     Indication: NEURALGIA
     Route: 048
     Dates: start: 20121114
  2. BRIMONIDINE (BRIMONIDINE) [Concomitant]
  3. CALCIUM AND VITAMIN D3 (CALCIUM D3) [Concomitant]
  4. CETIRIZINE (CETIRIZINE) [Concomitant]
  5. COD LIVER OIL (COD-LIVER OIL) [Concomitant]
  6. FLUTICASONE PROPIONATE (FLUTICASONE PROPIONATE) [Concomitant]
  7. PAROXETINE (PAROXETINE) [Concomitant]
  8. PREDNISOLONE (PREDNISOLONE) [Concomitant]
  9. SALAMOL (SALBUTAMOL) [Concomitant]
  10. SYMBICORT (BUDESONIDE W/FORMOTEROL FUMARATE) [Concomitant]
  11. VITAMIN D3 (COLECALCIFEROL) [Concomitant]

REACTIONS (2)
  - Asthma [None]
  - Therapeutic response unexpected [None]
